FAERS Safety Report 21279947 (Version 1)
Quarter: 2022Q3

REPORT INFORMATION
  Report Type: Spontaneous
  Country: US (occurrence: US)
  Receive Date: 20220901
  Receipt Date: 20220901
  Transmission Date: 20221027
  Serious: Yes (Other)
  Sender: FDA-Public Use
  Company Number: US-BRISTOL-MYERS SQUIBB COMPANY-2022-094657

PATIENT
  Age: 84 Year
  Sex: Female

DRUGS (1)
  1. REVLIMID [Suspect]
     Active Substance: LENALIDOMIDE
     Indication: Plasma cell myeloma
     Dosage: DAILY 21 DAYS ON 7 OFF
     Route: 048
     Dates: start: 20220815

REACTIONS (5)
  - Glaucoma [Unknown]
  - Retinal vein occlusion [Unknown]
  - Confusional state [Unknown]
  - Visual impairment [Unknown]
  - Condition aggravated [Unknown]
